FAERS Safety Report 4697223-3 (Version None)
Quarter: 2005Q2

REPORT INFORMATION
  Report Type: 
  Country: None (occurrence: None)
  Receive Date: 20050622
  Receipt Date: 20050503
  Transmission Date: 20051028
  Serious: Yes (Death)
  Sender: FDA-Public Use
  Company Number: 2005-UK-00676UK

PATIENT
  Age: 77 Year
  Sex: Male

DRUGS (22)
  1. ALBUTEROL [Suspect]
     Dosage: 100MCG SEE DOSAGE TEXT
     Route: 055
  2. BECLOMETHASONE DIPROPIONATE [Suspect]
     Dosage: 50MCG TWICE PER DAY
     Route: 055
  3. ASPIRIN [Suspect]
     Dosage: 75MG UNKNOWN
     Route: 065
  4. COMBIVENT [Suspect]
     Route: 055
  5. SPIRIVA [Suspect]
     Dosage: 18MCG UNKNOWN
     Route: 055
  6. ATORVASTATIN CALCIUM [Suspect]
     Dosage: 10MG PER DAY
     Route: 065
  7. FRUMIL [Suspect]
     Route: 065
  8. DEXAMETHASONE [Suspect]
     Dosage: 2MG UNKNOWN
     Route: 065
  9. DILTIAZEM [Suspect]
     Dosage: 60MG PER DAY
     Route: 065
  10. DOSULEPIN [Suspect]
     Dosage: 75MG AT NIGHT
     Route: 065
  11. FUROSEMIDE [Suspect]
     Route: 065
  12. GAVISCON [Suspect]
     Dosage: 10ML FOUR TIMES PER DAY
     Route: 065
  13. LACTULOSE [Suspect]
     Route: 065
  14. LANSOPRAZOLE [Suspect]
     Dosage: 30MG PER DAY
     Route: 065
  15. METOCLOPRAMIDE [Suspect]
     Dosage: 10MG THREE TIMES PER DAY
     Route: 065
  16. NITROLINGUAL [Suspect]
     Dosage: 400MG UNKNOWN
     Route: 065
  17. NOZINAN [Suspect]
     Dosage: 25MG FOUR TIMES PER DAY
     Route: 065
  18. OXYCODONE HCL [Suspect]
     Dosage: 20MG TWICE PER DAY
     Route: 065
  19. OXYGEN [Suspect]
     Route: 055
  20. SPIRONOLACTONE [Suspect]
     Dosage: 50MG UNKNOWN
     Route: 065
  21. SYMBICORT [Suspect]
     Dosage: 2PUFF TWICE PER DAY
     Route: 055
  22. TEMAZEPAM [Suspect]
     Dosage: 10MG SEE DOSAGE TEXT
     Route: 065

REACTIONS (1)
  - MESOTHELIOMA [None]
